FAERS Safety Report 7005904-1 (Version None)
Quarter: 2010Q3

REPORT INFORMATION
  Report Type: 
  Country: None (occurrence: None)
  Receive Date: 20100921
  Receipt Date: 20100907
  Transmission Date: 20110219
  Serious: Yes (Other)
  Sender: FDA-Public Use
  Company Number: PHHY2010JP59991

PATIENT
  Age: 14 Month
  Sex: Male

DRUGS (11)
  1. CYCLOSPORINE [Suspect]
     Indication: CORD BLOOD TRANSPLANT THERAPY
     Dosage: 3 MG/KG/DAY
     Route: 042
  2. CYCLOSPORINE [Suspect]
     Indication: PROPHYLAXIS AGAINST GRAFT VERSUS HOST DISEASE
  3. CYCLOSPORINE [Suspect]
     Indication: STEM CELL TRANSPLANT
  4. TACROLIMUS [Suspect]
     Indication: STEM CELL TRANSPLANT
     Dosage: 0.02 MG/ KG/DAY
     Route: 042
  5. TACROLIMUS [Suspect]
     Indication: PROPHYLAXIS AGAINST GRAFT VERSUS HOST DISEASE
  6. METHOTREXATE [Suspect]
     Indication: STEM CELL TRANSPLANT
     Dosage: 5 MG/M2
  7. METHOTREXATE [Suspect]
     Indication: PROPHYLAXIS AGAINST GRAFT VERSUS HOST DISEASE
  8. HEPARIN [Concomitant]
     Dosage: 10 U/KG/H
  9. PROSTAGLANDIN E1 [Concomitant]
     Dosage: 30 NG/KG/H
  10. TB1 [Concomitant]
     Dosage: 1200 CGY
  11. THIOTEPA [Concomitant]
     Dosage: 200 MG/M2, BID

REACTIONS (5)
  - CHRONIC GRAFT VERSUS HOST DISEASE [None]
  - CYTOMEGALOVIRUS VIRAEMIA [None]
  - DIARRHOEA [None]
  - RASH [None]
  - STOMATITIS [None]
